FAERS Safety Report 9882974 (Version 1)
Quarter: 2014Q1

REPORT INFORMATION
  Report Type: Spontaneous
  Country: CH (occurrence: None)
  Receive Date: 20140204
  Receipt Date: 20140204
  Transmission Date: 20141002
  Serious: Yes (Hospitalization)
  Sender: FDA-Public Use
  Company Number: 20140024

PATIENT
  Age: 45 Year
  Sex: Female

DRUGS (3)
  1. VENOFER (IRON SUCROSE INJECTION-VIFOR) (IRON SUCROSE INJECTION) 20 MG/ML [Suspect]
     Indication: ANAEMIA
     Dosage: 3 AMPOULES (3 DF, IN 1 D) INTRAVENOUS
     Route: 042
     Dates: start: 20131106, end: 20131108
  2. EXACYL (TRANEXAMIC ACID) (TRANEXAMIC ACID) [Concomitant]
  3. PERFALGAN (PARACETAMOL) [Concomitant]

REACTIONS (3)
  - Injection site swelling [None]
  - Phlebitis [None]
  - Wrong technique in drug usage process [None]
